FAERS Safety Report 4627521-0 (Version None)
Quarter: 2005Q2

REPORT INFORMATION
  Report Type: 
  Country: None (occurrence: None)
  Receive Date: 20050405
  Receipt Date: 20050323
  Transmission Date: 20051028
  Serious: Yes (Hospitalization, Other)
  Sender: FDA-Public Use
  Company Number: USA-2005-0019488

PATIENT
  Sex: Female

DRUGS (1)
  1. OXYCONTIN [Suspect]

REACTIONS (5)
  - CHEST PAIN [None]
  - CIRCULATORY COLLAPSE [None]
  - HEART INJURY [None]
  - LOSS OF CONSCIOUSNESS [None]
  - SEDATION [None]
